FAERS Safety Report 4307525-8 (Version None)
Quarter: 2004Q1

REPORT INFORMATION
  Report Type: 
  Country: None (occurrence: None)
  Receive Date: 20040226
  Receipt Date: 20040211
  Transmission Date: 20041129
  Serious: Yes (Hospitalization, Other)
  Sender: FDA-Public Use
  Company Number: 2003125361

PATIENT
  Age: 55 Year
  Sex: Female
  Weight: 81.6475 kg

DRUGS (14)
  1. LIPITOR [Suspect]
     Indication: BLOOD CHOLESTEROL INCREASED
     Dosage: 10 MG (DAILY), ORAL
     Route: 048
     Dates: start: 20030501, end: 20031210
  2. LISINOPRIL [Suspect]
     Indication: CORONARY ARTERY DISEASE
     Dosage: 10 MG (DAILY)
     Dates: start: 20021111, end: 20031204
  3. HYDROCHLOROTHIAZIDE [Suspect]
     Indication: ILL-DEFINED DISORDER
  4. ALL OTHER THERAPEUTIC PRODUCTS [Suspect]
     Indication: ILL-DEFINED DISORDER
  5. KARVEA HCT (HYDROCHLOROTHIAZIDE, IRBESARTAN) [Concomitant]
  6. OMEPRAZOLE [Concomitant]
  7. ACETYLSALICYLIC ACID SRT [Concomitant]
  8. AMITRIPTYLINE HCL [Concomitant]
  9. CLOPIDOGREL BISULFATE [Concomitant]
  10. MULTIVITAMINS (ERGOCALCIFEROL, ASCORBIC CID, FOLIC ACID, THIAMINE HYDR [Concomitant]
  11. ASCORBIC ACID [Concomitant]
  12. TOCOPHEROL CONCENTRATE CAP [Concomitant]
  13. PRAVASTATIN SODIUM [Concomitant]
  14. EZETIMIBE (EZETIMIBE) [Concomitant]

REACTIONS (26)
  - ABDOMINAL PAIN [None]
  - ANXIETY DISORDER [None]
  - ARRHYTHMIA [None]
  - ARTHRALGIA [None]
  - ASTHENIA [None]
  - CARDIAC DISORDER [None]
  - CARDIAC FAILURE CONGESTIVE [None]
  - CHOLECYSTECTOMY [None]
  - COLD SWEAT [None]
  - CORONARY ARTERY DISEASE [None]
  - CORONARY ARTERY OCCLUSION [None]
  - COUGH [None]
  - DIARRHOEA [None]
  - FEELING HOT [None]
  - GAIT DISTURBANCE [None]
  - INSOMNIA [None]
  - JOINT SWELLING [None]
  - LIPIDS ABNORMAL [None]
  - LOW DENSITY LIPOPROTEIN INCREASED [None]
  - NAUSEA [None]
  - NEUROPATHY [None]
  - PAIN [None]
  - PARAESTHESIA [None]
  - POST-TRAUMATIC STRESS DISORDER [None]
  - RED BLOOD CELL SEDIMENTATION RATE INCREASED [None]
  - WEIGHT INCREASED [None]
